FAERS Safety Report 11794934 (Version 1)
Quarter: 2015Q4

REPORT INFORMATION
  Report Type: Spontaneous
  Country: US (occurrence: US)
  Receive Date: 20151202
  Receipt Date: 20151202
  Transmission Date: 20160305
  Serious: No
  Sender: FDA-Public Use
  Company Number: US-PFIZER INC-2015396973

PATIENT
  Age: 55 Year
  Sex: Male

DRUGS (1)
  1. SUTENT [Suspect]
     Active Substance: SUNITINIB MALATE
     Dosage: 37.5 MG, CYCLIC (12.5 MG TAKE 3 CAPSULES BY MOUTH DAILY FOR 14 DAYS FOLLOWED BY 7 DAYS OFF)
     Route: 048
     Dates: start: 201507

REACTIONS (1)
  - Peripheral swelling [Unknown]
